FAERS Safety Report 6018628-4 (Version None)
Quarter: 2008Q4

REPORT INFORMATION
  Report Type: 
  Country: None (occurrence: None)
  Receive Date: 20081223
  Receipt Date: 20081218
  Transmission Date: 20090506
  Serious: Yes (Hospitalization, Other)
  Sender: FDA-Public Use
  Company Number: FR-AMGEN-UK277958

PATIENT
  Sex: Female
  Weight: 77 kg

DRUGS (1)
  1. ROMIPLOSTIM [Suspect]
     Indication: IDIOPATHIC THROMBOCYTOPENIC PURPURA
     Route: 058
     Dates: start: 20080201, end: 20080408

REACTIONS (4)
  - GINGIVAL BLEEDING [None]
  - HAEMORRHAGE [None]
  - MELAENA [None]
  - THROMBOCYTOPENIA [None]
